FAERS Safety Report 23867246 (Version 1)
Quarter: 2024Q2

REPORT INFORMATION
  Report Type: Spontaneous
  Country: US (occurrence: US)
  Receive Date: 20240517
  Receipt Date: 20240517
  Transmission Date: 20240715
  Serious: Yes (Other)
  Sender: FDA-Public Use
  Company Number: US-ELI_LILLY_AND_COMPANY-US202405004866

PATIENT
  Age: 76 Year
  Sex: Female

DRUGS (1)
  1. BASAGLAR [Suspect]
     Active Substance: INSULIN GLARGINE
     Indication: Type 2 diabetes mellitus
     Dosage: 20 U, UNKNOWN
     Route: 058

REACTIONS (8)
  - Dementia Alzheimer^s type [Unknown]
  - Heart rate increased [Unknown]
  - Speech disorder [Unknown]
  - Mobility decreased [Unknown]
  - Arthritis [Unknown]
  - Back pain [Unknown]
  - Blood pressure increased [Recovered/Resolved]
  - Blood glucose decreased [Recovered/Resolved]
